FAERS Safety Report 11786232 (Version 2)
Quarter: 2017Q2

REPORT INFORMATION
  Report Type: Spontaneous
  Country: JP (occurrence: JP)
  Receive Date: 20151130
  Receipt Date: 20170530
  Transmission Date: 20170829
  Serious: Yes (Hospitalization)
  Sender: FDA-Public Use
  Company Number: JP-PFIZER INC-2015413545

PATIENT
  Age: 53 Year
  Sex: Female

DRUGS (4)
  1. EPIRUBICIN HCL [Suspect]
     Active Substance: EPIRUBICIN HYDROCHLORIDE
     Indication: BREAST CANCER STAGE I
     Dosage: 100 MG/M2, FOUR CYCLES OF FEC EVERY 3 WEEKS
  2. CYCLOPHOSPHAMIDE. [Suspect]
     Active Substance: CYCLOPHOSPHAMIDE
     Indication: BREAST CANCER STAGE I
     Dosage: 500 MG/M2, FOUR CYCLES OF FEC EVERY 3 WEEKS
  3. FLUOROURACIL. [Suspect]
     Active Substance: FLUOROURACIL
     Indication: BREAST CANCER STAGE I
     Dosage: 500 MG/M2, FOUR CYCLES OF FEC EVERY 3 WEEKS
  4. DOCETAXEL. [Suspect]
     Active Substance: DOCETAXEL
     Indication: BREAST CANCER STAGE I
     Dosage: UNK, CYCLIC (FOUR CYCLES)

REACTIONS (1)
  - Miller Fisher syndrome [Recovering/Resolving]
